FAERS Safety Report 5414271-6 (Version None)
Quarter: 2007Q3

REPORT INFORMATION
  Report Type: 
  Country: None (occurrence: None)
  Receive Date: 20070713
  Receipt Date: 20070518
  Transmission Date: 20080115
  Serious: Yes (Life-Threatening, Hospitalization)
  Sender: FDA-Public Use
  Company Number: US-JNJFOC-20061201722

PATIENT
  Age: 36 Year
  Sex: Female
  Weight: 100 kg

DRUGS (4)
  1. ORTHO EVRA [Suspect]
     Indication: CONTRACEPTION
     Dosage: TRANSDERMAL
     Route: 062
     Dates: start: 20040601, end: 20060109
  2. STATIN (CHOLESTEROL- AND TRIGLYCERIDE REDUCERS) [Concomitant]
  3. PRILOSEC [Concomitant]
     Indication: CONTRACEPTION
     Dosage: TRANSDERMAL
     Route: 062
     Dates: start: 20040601, end: 20060109
  4. STATIN (CHOLESTEROL- AND TRIGLYCERIDES REDUCERS) [Concomitant]

REACTIONS (1)
  - PULMONARY EMBOLISM [None]
